FAERS Safety Report 16262793 (Version 1)
Quarter: 2019Q2

REPORT INFORMATION
  Report Type: Report from Study
  Country: GB (occurrence: GB)
  Receive Date: 20190502
  Receipt Date: 20190502
  Transmission Date: 20190711
  Serious: Yes (Hospitalization)
  Sender: FDA-Public Use
  Company Number: GB-EMD SERONO-9088308

PATIENT
  Sex: Male

DRUGS (3)
  1. DULOXETINE. [Concomitant]
     Active Substance: DULOXETINE
     Indication: PRODUCT USED FOR UNKNOWN INDICATION
  2. PREGABALIN. [Concomitant]
     Active Substance: PREGABALIN
     Indication: PRODUCT USED FOR UNKNOWN INDICATION
  3. REBIF [Suspect]
     Active Substance: INTERFERON BETA-1A
     Indication: MULTIPLE SCLEROSIS
     Dosage: 22 MICROGRAM (6 MIU)
     Route: 058
     Dates: start: 20100920, end: 201903

REACTIONS (6)
  - Impaired self-care [Unknown]
  - Tremor [Unknown]
  - Jaundice [Unknown]
  - Hospitalisation [Unknown]
  - Multiple sclerosis [Unknown]
  - Polydipsia [Unknown]

NARRATIVE: CASE EVENT DATE: 2019
